FAERS Safety Report 7578736-3 (Version None)
Quarter: 2011Q2

REPORT INFORMATION
  Report Type: 
  Country: None (occurrence: None)
  Receive Date: 20110628
  Receipt Date: 20110624
  Transmission Date: 20111010
  Serious: No
  Sender: FDA-Public Use
  Company Number: US-TEVA-287969USA

PATIENT
  Sex: Female
  Weight: 45.4 kg

DRUGS (2)
  1. PROAIR HFA [Suspect]
     Indication: COUGH
     Route: 055
     Dates: start: 20110623
  2. AZITHROMYCIN [Concomitant]
     Dates: start: 20110623

REACTIONS (2)
  - HEADACHE [None]
  - CHEST PAIN [None]
